FAERS Safety Report 10142862 (Version 1)
Quarter: 2014Q2

REPORT INFORMATION
  Report Type: Spontaneous
  Country: FR (occurrence: None)
  Receive Date: 20140428
  Receipt Date: 20140428
  Transmission Date: 20141212
  Serious: Yes (Life-Threatening)
  Sender: FDA-Public Use
  Company Number: 201400089

PATIENT
  Age: 68 Year
  Sex: Male

DRUGS (18)
  1. SELENIUM [Suspect]
     Route: 042
     Dates: start: 20140122, end: 20140122
  2. ZINC GLUCONATE [Suspect]
     Route: 042
     Dates: start: 20140122, end: 20140122
  3. VINTENE [Suspect]
     Route: 042
     Dates: start: 20140122, end: 20140122
  4. LAROSCORBINE [Suspect]
     Route: 042
     Dates: start: 20140122, end: 20140122
  5. BEVITINE [Suspect]
     Route: 042
     Dates: start: 20140122, end: 20140122
  6. CHLORHYDRATE DE PYRIDOXINE [Suspect]
     Route: 042
     Dates: start: 20140122, end: 20140122
  7. VITAMIN E [Suspect]
     Route: 042
     Dates: start: 20140122, end: 20140122
  8. VITAMIN E [Suspect]
     Route: 042
     Dates: start: 20140122, end: 20140122
  9. CERNEVIT [Suspect]
     Route: 042
     Dates: start: 20140122, end: 20140122
  10. KARDEGIC [Concomitant]
  11. TAHOR [Concomitant]
  12. INEXIUM [Concomitant]
  13. FUROSEMIDE [Concomitant]
  14. SPASFON [Concomitant]
  15. DEBRIDAT [Concomitant]
  16. IMOVANE  (ZOPICLONE) [Concomitant]
  17. CALCIPARINE [Concomitant]
  18. DIFFU K [Concomitant]

REACTIONS (3)
  - Anaphylactoid shock [None]
  - Feeling hot [None]
  - Hyperhidrosis [None]
